FAERS Safety Report 6216488-X (Version None)
Quarter: 2009Q2

REPORT INFORMATION
  Report Type: 
  Country: None (occurrence: None)
  Receive Date: 20090605
  Receipt Date: 20090527
  Transmission Date: 20091009
  Serious: Yes (Hospitalization)
  Sender: FDA-Public Use
  Company Number: US-MERCK-0906USA00507

PATIENT
  Age: 62 Year
  Sex: Male

DRUGS (17)
  1. HYDRODIURIL [Suspect]
     Route: 065
  2. AMLODIPINE [Concomitant]
     Route: 065
  3. METOPROLOL [Concomitant]
     Route: 065
  4. INSULIN LISPRO [Concomitant]
     Route: 065
  5. CARDIOL (CARVEDILOL) [Concomitant]
     Route: 065
  6. SIMVASTATIN [Concomitant]
     Route: 065
  7. CLOPIDOGREL BISULFATE [Concomitant]
     Route: 065
  8. ESOMEPRAZOLE [Concomitant]
     Route: 065
  9. ASPIRIN [Concomitant]
     Route: 065
  10. HEPARIN [Concomitant]
     Route: 065
  11. CLOTRIMAZOLE [Concomitant]
     Route: 065
  12. INSULIN HUMAN [Concomitant]
     Route: 065
  13. SODIUM PHOSPHATE, DIBASIC [Concomitant]
     Route: 065
  14. POTASSIUM PHOSPHATE, DIBASIC [Concomitant]
     Route: 065
  15. INSULIN GLARGINE [Concomitant]
     Route: 065
  16. SODIUM PHOSPHATE, MONOBASIC [Concomitant]
     Route: 065
  17. POTASSIUM PHOSPHATE, MONOBASIC [Concomitant]
     Route: 065

REACTIONS (2)
  - BLOOD PRESSURE ABNORMAL [None]
  - DIABETES MELLITUS INADEQUATE CONTROL [None]
